FAERS Safety Report 6790547-5 (Version None)
Quarter: 2010Q2

REPORT INFORMATION
  Report Type: 
  Country: None (occurrence: None)
  Receive Date: 20100624
  Receipt Date: 20100615
  Transmission Date: 20101027
  Serious: Yes (Other)
  Sender: FDA-Public Use
  Company Number: US-ROCHE-710342

PATIENT
  Sex: Female

DRUGS (1)
  1. ACTEMRA [Suspect]
     Dosage: RECEIVED ONLY ONE DOSE.
     Route: 042
     Dates: start: 20081201

REACTIONS (2)
  - FALL [None]
  - TIBIA FRACTURE [None]
